FAERS Safety Report 4699317-5 (Version None)
Quarter: 2005Q2

REPORT INFORMATION
  Report Type: 
  Country: None (occurrence: None)
  Receive Date: 20050624
  Receipt Date: 20050512
  Transmission Date: 20051028
  Serious: Yes (Hospitalization)
  Sender: FDA-Public Use
  Company Number: JP-GLAXOSMITHKLINE-B0381039A

PATIENT
  Age: 30 Year
  Sex: Female
  Weight: 55 kg

DRUGS (2)
  1. ZANTAC [Suspect]
     Indication: DUODENAL ULCER
     Dosage: 150MG TWICE PER DAY
     Route: 048
     Dates: start: 20050414, end: 20050428
  2. NAUZELIN [Concomitant]
     Indication: DUODENAL ULCER
     Dosage: 30MG PER DAY
     Route: 048
     Dates: start: 20050414, end: 20050428

REACTIONS (7)
  - ALANINE AMINOTRANSFERASE INCREASED [None]
  - ASPARTATE AMINOTRANSFERASE INCREASED [None]
  - BLOOD ALKALINE PHOSPHATASE INCREASED [None]
  - BLOOD LACTATE DEHYDROGENASE INCREASED [None]
  - GAMMA-GLUTAMYLTRANSFERASE INCREASED [None]
  - LEUCINE AMINOPEPTIDASE INCREASED [None]
  - LIVER DISORDER [None]
